FAERS Safety Report 5274948-2 (Version None)
Quarter: 2007Q1

REPORT INFORMATION
  Report Type: 
  Country: None (occurrence: None)
  Receive Date: 20061207
  Receipt Date: 20061026
  Transmission Date: 20070707
  Serious: No
  Sender: FDA-Public Use
  Company Number: 36975

PATIENT
  Age: 70 Year
  Sex: Female

DRUGS (7)
  1. NEVANAC [Suspect]
     Indication: PROPHYLAXIS
  2. VIGAMOX [Suspect]
     Indication: PROPHYLAXIS
  3. ECONOPRED PLUS [Suspect]
     Indication: PROPHYLAXIS
  4. IMDUR [Concomitant]
  5. XANAX [Concomitant]
  6. BENADRYL [Concomitant]
  7. LAXATIVES (UNSPECIFIED) [Concomitant]

REACTIONS (4)
  - ERYTHEMA [None]
  - EYE SWELLING [None]
  - PRURITUS [None]
  - SKIN EXFOLIATION [None]
